FAERS Safety Report 5827838-8 (Version None)
Quarter: 2008Q3

REPORT INFORMATION
  Report Type: 
  Country: None (occurrence: None)
  Receive Date: 20080728
  Receipt Date: 20080714
  Transmission Date: 20090109
  Serious: Yes (Other)
  Sender: FDA-Public Use
  Company Number: A0737657A

PATIENT
  Age: 45 Year
  Sex: Male

DRUGS (1)
  1. ALGINIC ACID + ALUMINIUM HYDROXIDE + MAGNESIUM CARBONATE TAB (ALGIN.AC [Suspect]
     Indication: DRUG USE FOR UNKNOWN INDICATION
     Dosage: UNK/UNK/ORAL
     Route: 048

REACTIONS (1)
  - DEMENTIA [None]
